FAERS Safety Report 11245901 (Version 1)
Quarter: 2015Q3

REPORT INFORMATION
  Report Type: Spontaneous
  Country: SE (occurrence: SE)
  Receive Date: 20150708
  Receipt Date: 20150708
  Transmission Date: 20151125
  Serious: Yes (Other)
  Sender: FDA-Public Use
  Company Number: SE-AMGEN-SWESP2015066094

PATIENT
  Age: 88 Year
  Sex: Female

DRUGS (17)
  1. PROLIA [Suspect]
     Active Substance: DENOSUMAB
     Indication: OSTEOPOROSIS
     Route: 058
     Dates: start: 20150526
  2. ENALAPRIL ASTIMEX [Concomitant]
     Dosage: 10 MG, UNK
     Route: 048
  3. IMOVANE [Concomitant]
     Active Substance: ZOPICLONE
     Dosage: 5 MG, UNK
     Route: 048
  4. NATRIUMKLORID [Concomitant]
  5. WARFARIN ORION [Concomitant]
     Dosage: 2.5 MG, UNK
     Route: 048
  6. AMOXICILLIN. [Suspect]
     Active Substance: AMOXICILLIN
     Indication: PRODUCT USED FOR UNKNOWN INDICATION
     Route: 048
     Dates: start: 20150602
  7. MOVICOL [Concomitant]
     Active Substance: POLYETHYLENE GLYCOL 3350\POTASSIUM CHLORIDE\SODIUM BICARBONATE\SODIUM CHLORIDE
     Route: 048
  8. KALCIPOS-D [Concomitant]
     Active Substance: CALCIUM CARBONATE\CHOLECALCIFEROL
     Dosage: 500/800 MG
     Route: 048
  9. FOLACIN                            /00024201/ [Concomitant]
     Active Substance: FOLIC ACID
     Dosage: 1 MG, UNK
     Route: 048
  10. BISOPROLOL ACTAVIS [Concomitant]
     Active Substance: BISOPROLOL
     Dosage: 5 MG, UNK
     Route: 048
  11. AMLORATIO [Concomitant]
     Dosage: 5 MG, UNK
     Route: 048
  12. FUCIDIN                            /00065701/ [Concomitant]
     Dosage: 250 MG, UNK
     Route: 048
  13. ALVEDON [Concomitant]
     Active Substance: ACETAMINOPHEN
     Dosage: 665 MG, UNK
     Route: 048
  14. KALEORID [Concomitant]
     Active Substance: POTASSIUM CHLORIDE
     Dosage: 750 MG, UNK
     Route: 048
  15. NIFEREX                            /00023531/ [Concomitant]
     Dosage: 100 MG, UNK
  16. BISOPROLOL TEVA [Concomitant]
     Active Substance: BISOPROLOL
     Dosage: 2.5 MG, UNK
     Route: 048
  17. OXASCAND [Concomitant]
     Active Substance: OXAZEPAM
     Dosage: 10 MG, UNK
     Route: 048

REACTIONS (2)
  - Rash pruritic [Unknown]
  - Swelling face [Unknown]

NARRATIVE: CASE EVENT DATE: 20150614
